FAERS Safety Report 10155606 (Version 4)
Quarter: 2014Q4

REPORT INFORMATION
  Report Type: Spontaneous
  Country: US (occurrence: US)
  Receive Date: 20140506
  Receipt Date: 20141016
  Transmission Date: 20150528
  Serious: Yes (Other)
  Sender: FDA-Public Use
  Company Number: US-GLAXOSMITHKLINE-A0886814A

PATIENT
  Age: 58 Year
  Sex: Female
  Weight: 51 kg

DRUGS (6)
  1. FLOLAN [Suspect]
     Active Substance: EPOPROSTENOL SODIUM
     Dosage: UNK
     Dates: start: 20071005
  2. FLOLAN [Suspect]
     Active Substance: EPOPROSTENOL SODIUM
     Dosage: UNK
     Dates: start: 20071005
  3. FLOLAN [Suspect]
     Active Substance: EPOPROSTENOL SODIUM
     Dosage: UNK
     Dates: start: 20071005
  4. DIGOXIN. [Concomitant]
     Active Substance: DIGOXIN
     Route: 048
  5. FLOLAN [Suspect]
     Active Substance: EPOPROSTENOL SODIUM
     Dosage: 34 NG/KG/MIN, CONCENTRATION 45,000 NG/ML, PUMP RATE 66 ML PER DAY, 1.5 MG VIAL STRENGTH, CO
     Dates: start: 20071113
  6. FLOLAN [Suspect]
     Active Substance: EPOPROSTENOL SODIUM
     Indication: COR PULMONALE CHRONIC
     Dosage: 34 NG/KG/MIN, CONCENTRATION 45,000 NG/ML, PUMP RATE 66 ML PER DAY, 1.5 MG VIAL STRENGTH
     Route: 042
     Dates: start: 20071005

REACTIONS (12)
  - Investigation [Unknown]
  - Flushing [Unknown]
  - Central venous catheter removal [Recovered/Resolved]
  - Diarrhoea [Unknown]
  - Alopecia [Unknown]
  - Cough [Unknown]
  - Central venous catheterisation [Unknown]
  - Therapy cessation [Unknown]
  - Device malfunction [Unknown]
  - Pain in extremity [Unknown]
  - Catheter removal [Recovered/Resolved]
  - Swelling [Unknown]

NARRATIVE: CASE EVENT DATE: 20140406
